FAERS Safety Report 7774351-7 (Version None)
Quarter: 2011Q3

REPORT INFORMATION
  Report Type: 
  Country: None (occurrence: None)
  Receive Date: 20110923
  Receipt Date: 20110919
  Transmission Date: 20111222
  Serious: Yes (Death)
  Sender: FDA-Public Use
  Company Number: PHHY2011PE82890

PATIENT
  Sex: Male

DRUGS (1)
  1. DIOVAN [Suspect]
     Indication: HYPERTENSION
     Dosage: 160 MG, UNK
     Dates: start: 20100301

REACTIONS (2)
  - DEATH [None]
  - MALAISE [None]
